FAERS Safety Report 7115393-4 (Version None)
Quarter: 2010Q4

REPORT INFORMATION
  Report Type: 
  Country: None (occurrence: None)
  Receive Date: 20101122
  Receipt Date: 20101112
  Transmission Date: 20110411
  Serious: Yes (Hospitalization)
  Sender: FDA-Public Use
  Company Number: US-AMGEN AB-USASP2010000208

PATIENT

DRUGS (10)
  1. NPLATE [Suspect]
     Indication: IDIOPATHIC THROMBOCYTOPENIC PURPURA
     Dosage: 1 A?G/KG, UNK
     Route: 058
     Dates: start: 20081217, end: 20100902
  2. CORTICOSTEROIDS [Concomitant]
     Indication: IDIOPATHIC THROMBOCYTOPENIC PURPURA
     Dosage: UNK
     Dates: start: 20060629
  3. ARICEPT                            /01318901/ [Concomitant]
  4. OMEGA 3                            /00931501/ [Concomitant]
  5. CALCIUM [Concomitant]
  6. FIBER [Concomitant]
  7. DIGOXINE [Concomitant]
  8. MULTIVITAMIN                       /00097801/ [Concomitant]
  9. RITUXAN [Concomitant]
     Dosage: UNK
     Dates: start: 20080527, end: 20080617
  10. VINCRISTINE [Concomitant]
     Dosage: 2 MG, QWK
     Dates: start: 20071218, end: 20080221

REACTIONS (1)
  - DEMENTIA [None]
